FAERS Safety Report 7184665-X (Version None)
Quarter: 2010Q4

REPORT INFORMATION
  Report Type: 
  Country: None (occurrence: None)
  Receive Date: 20101222
  Receipt Date: 20100524
  Transmission Date: 20110411
  Serious: No
  Sender: FDA-Public Use
  Company Number: US-AMGEN-KDL413976

PATIENT

DRUGS (11)
  1. ENBREL [Suspect]
     Indication: PRODUCT USED FOR UNKNOWN INDICATION
     Dosage: 50 MG, QWK
     Route: 058
  2. TRAMADOL HYDROCHLORIDE [Concomitant]
     Dosage: 50 MG, UNK
  3. OMEPRAZOLE [Concomitant]
     Dosage: 20 MG, UNK
  4. ACYCLOVIR [Concomitant]
     Dosage: 200 MG, UNK
  5. FOLIC ACID [Concomitant]
     Dosage: 1 MG, UNK
  6. LEVOTHYROXINE SODIUM [Concomitant]
     Dosage: 100 MG, UNK
  7. METHOTREXATE [Concomitant]
     Dosage: 50 MG, UNK
  8. ERGOCALCIFEROL [Concomitant]
     Dosage: 1000 IU, UNK
  9. MODAFINIL [Concomitant]
     Dosage: 100 MG, UNK
  10. MULTI-VITAMINS [Concomitant]
     Dosage: UNK UNK, UNK
  11. LYSINE [Concomitant]
     Dosage: 500 MG, UNK

REACTIONS (5)
  - INJECTION SITE ERYTHEMA [None]
  - INJECTION SITE HAEMATOMA [None]
  - INJECTION SITE PRURITUS [None]
  - INJECTION SITE REACTION [None]
  - INJECTION SITE SWELLING [None]
